FAERS Safety Report 5239946-3 (Version None)
Quarter: 2007Q1

REPORT INFORMATION
  Report Type: 
  Country: None (occurrence: None)
  Receive Date: 20070216
  Receipt Date: 20070207
  Transmission Date: 20070707
  Serious: Yes (Hospitalization, Disabling, Other)
  Sender: FDA-Public Use
  Company Number: US-PFIZER INC-2006065838

PATIENT
  Sex: Female
  Weight: 78.9 kg

DRUGS (2)
  1. CELEBREX [Suspect]
     Indication: PAIN
     Dates: start: 19990428, end: 20010101
  2. CELEBREX [Suspect]
     Indication: ARTHRITIS

REACTIONS (2)
  - ARTERIAL THROMBOSIS [None]
  - MYOCARDIAL INFARCTION [None]
